FAERS Safety Report 23747883 (Version 1)
Quarter: 2024Q2

REPORT INFORMATION
  Report Type: Spontaneous
  Country: US (occurrence: US)
  Receive Date: 20240416
  Receipt Date: 20240416
  Transmission Date: 20240716
  Serious: Yes (Life-Threatening, Other)
  Sender: FDA-Public Use
  Company Number: US-SAMSUNG BIOEPIS-SB-2024-10433

PATIENT
  Age: 54 Year
  Sex: Male

DRUGS (3)
  1. INFLIXIMAB [Suspect]
     Active Substance: INFLIXIMAB
     Indication: Cardiac sarcoidosis
     Route: 065
  2. METHOTREXATE [Concomitant]
     Active Substance: METHOTREXATE
     Indication: Cardiac sarcoidosis
     Route: 065
  3. PREDNISONE [Concomitant]
     Active Substance: PREDNISONE
     Indication: Cardiac sarcoidosis
     Route: 065

REACTIONS (3)
  - Cardiogenic shock [Unknown]
  - Giant cell myocarditis [Unknown]
  - Product use in unapproved indication [Unknown]
